FAERS Safety Report 7501481-7 (Version None)
Quarter: 2011Q2

REPORT INFORMATION
  Report Type: 
  Country: None (occurrence: None)
  Receive Date: 20110524
  Receipt Date: 20090216
  Transmission Date: 20111010
  Serious: Yes (Other)
  Sender: FDA-Public Use
  Company Number: US-BAYER-200913507NA

PATIENT
  Age: 64 Year
  Sex: Male
  Weight: 98 kg

DRUGS (20)
  1. NORVASC [Concomitant]
     Dosage: 2.5 MG, QD
  2. SYNTHROID [Concomitant]
     Dosage: 0.50 MG, QD
  3. ZETIA [Concomitant]
     Dosage: 10 MG, QD
  4. NEO-SYNEPHRINE [Concomitant]
     Dosage: UNK
     Route: 042
     Dates: start: 20060119
  5. TRASYLOL [Suspect]
     Indication: HEART TRANSPLANT
     Dosage: 1 ML, INITIAL DOSE
     Route: 042
     Dates: start: 20060119, end: 20060119
  6. TRASYLOL [Suspect]
     Dosage: 25 ML/HOUR INFUSION
     Route: 042
     Dates: start: 20060119, end: 20060119
  7. PLATELETS [Concomitant]
     Dosage: 4 U, UNK
     Route: 042
     Dates: start: 20060119
  8. LANOXIN [Concomitant]
     Dosage: 0.125 MG, QD
  9. PROPRANOLOL [Concomitant]
     Dosage: 80 MG, TID
  10. CEFUROXIME [Concomitant]
     Dosage: UNK
     Route: 042
     Dates: start: 20060119
  11. COUMADIN [Concomitant]
     Dosage: 2 MG, QD
  12. AMOXICILLIN [Concomitant]
     Dosage: 500 MG, TID 5 DAYS
  13. FACTOR VII [Concomitant]
     Dosage: 2
     Route: 042
     Dates: start: 20060119
  14. TRASYLOL [Suspect]
     Indication: CARDIAC PACEMAKER REMOVAL
     Dosage: 100 ML LOADING DOSE
     Route: 042
     Dates: start: 20060119, end: 20060119
  15. AMARYL [Concomitant]
     Dosage: 2 MG, QD
     Route: 048
  16. ENALAPRIL MALEATE [Concomitant]
     Dosage: 2.5 MG, UNK
  17. ISOSORBIDE DINITRATE [Concomitant]
     Dosage: 40 MG, BID
  18. HEPARIN [Concomitant]
     Dosage: UNK
     Route: 042
     Dates: start: 20060119
  19. AMIODARONE HCL [Concomitant]
     Dosage: 200 MG, QD
  20. FRESH FROZEN PLASMA [Concomitant]
     Dosage: 10 U, UNK
     Route: 042
     Dates: start: 20060119

REACTIONS (17)
  - EMOTIONAL DISTRESS [None]
  - STRESS [None]
  - ANHEDONIA [None]
  - FEAR [None]
  - DEPRESSION [None]
  - RENAL FAILURE [None]
  - RENAL INJURY [None]
  - INJURY [None]
  - HALLUCINATION [None]
  - AMNESIA [None]
  - ANXIETY [None]
  - UNEVALUABLE EVENT [None]
  - POST-TRAUMATIC STRESS DISORDER [None]
  - COMA [None]
  - NERVOUS SYSTEM DISORDER [None]
  - RENAL IMPAIRMENT [None]
  - PAIN [None]
